FAERS Safety Report 14894525 (Version 2)
Quarter: 2018Q3

REPORT INFORMATION
  Report Type: Report from Study
  Country: None (occurrence: US)
  Receive Date: 20180515
  Receipt Date: 20180702
  Transmission Date: 20181010
  Serious: Yes (Hospitalization, Other)
  Sender: FDA-Public Use
  Company Number: US-ABBVIE-18K-163-2318303-00

PATIENT
  Age: 67 Year
  Sex: Female

DRUGS (2)
  1. HUMIRA [Suspect]
     Active Substance: ADALIMUMAB
     Indication: PSORIASIS
     Route: 058
  2. HUMIRA [Suspect]
     Active Substance: ADALIMUMAB
     Indication: PSORIATIC ARTHROPATHY

REACTIONS (20)
  - Thyroid cancer [Unknown]
  - Asthenia [Unknown]
  - Catheter site haematoma [Unknown]
  - Psoriasis [Recovering/Resolving]
  - Back pain [Unknown]
  - Loss of consciousness [Recovered/Resolved]
  - Loss of consciousness [Recovered/Resolved]
  - Synovial cyst [Not Recovered/Not Resolved]
  - Blood cholesterol increased [Unknown]
  - Dysphagia [Unknown]
  - Chronic kidney disease [Unknown]
  - Hypotension [Unknown]
  - Type 2 diabetes mellitus [Unknown]
  - Psoriatic arthropathy [Recovering/Resolving]
  - Fatigue [Unknown]
  - Heart rate increased [Unknown]
  - Syncope [Unknown]
  - Osteoarthritis [Unknown]
  - Neck pain [Unknown]
  - Thyroid mass [Unknown]

NARRATIVE: CASE EVENT DATE: 2016
